FAERS Safety Report 4355752-6 (Version None)
Quarter: 2004Q2

REPORT INFORMATION
  Report Type: 
  Country: None (occurrence: None)
  Receive Date: 20040505
  Receipt Date: 20040421
  Transmission Date: 20050107
  Serious: Yes (Hospitalization)
  Sender: FDA-Public Use
  Company Number: JP-JNJFOC-20040401125

PATIENT
  Age: 53 Year
  Sex: Male
  Weight: 68 kg

DRUGS (7)
  1. REMICADE [Suspect]
     Indication: RHEUMATOID ARTHRITIS
     Dosage: SEE IMAGE
     Route: 041
     Dates: start: 20040117, end: 20040117
  2. REMICADE [Suspect]
     Indication: RHEUMATOID ARTHRITIS
     Dosage: SEE IMAGE
     Route: 041
     Dates: start: 20040131, end: 20040131
  3. REMICADE [Suspect]
     Indication: RHEUMATOID ARTHRITIS
     Dosage: SEE IMAGE
     Route: 041
     Dates: start: 20040228, end: 20040228
  4. RHEUMATREX [Concomitant]
  5. MOVER (ACTARIT) [Concomitant]
  6. VOLTAREN [Concomitant]
  7. SELBEX (TEPRENONE) [Concomitant]

REACTIONS (3)
  - BACTERIAL INFECTION [None]
  - GROIN PAIN [None]
  - MONARTHRITIS [None]
